FAERS Safety Report 4673632-3 (Version None)
Quarter: 2005Q2

REPORT INFORMATION
  Report Type: 
  Country: None (occurrence: None)
  Receive Date: 20050525
  Receipt Date: 20050121
  Transmission Date: 20051028
  Serious: Yes (Death)
  Sender: FDA-Public Use
  Company Number: 2005AP00420

PATIENT
  Age: 27351 Day
  Sex: Male
  Weight: 60 kg

DRUGS (11)
  1. DIPRIVAN [Suspect]
     Indication: INDUCTION OF ANAESTHESIA
     Dosage: TOTAL 160-180 MG/DAY
     Route: 042
     Dates: start: 20050117, end: 20050117
  2. FENTANEST [Concomitant]
     Indication: ANALGESIC THERAPY
     Route: 042
     Dates: start: 20050117, end: 20050117
  3. MUSCULAX [Concomitant]
     Indication: HYPOTONIA
     Dates: start: 20050117, end: 20050117
  4. CERCINE [Concomitant]
     Indication: PREMEDICATION
     Route: 048
  5. ZYLORIC [Concomitant]
     Indication: GOUT
     Route: 048
  6. DAONIL [Concomitant]
     Indication: DIABETES MELLITUS
     Route: 048
  7. DAONIL [Concomitant]
     Route: 048
  8. BAYLOTENSIN [Concomitant]
     Indication: HYPERTENSION
     Route: 048
  9. TANATRIL [Concomitant]
     Indication: HYPERTENSION
     Route: 048
  10. GASTER D [Concomitant]
     Route: 048
  11. HARNAL [Concomitant]
     Indication: BENIGN PROSTATIC HYPERPLASIA
     Route: 048

REACTIONS (10)
  - ACUTE MYOCARDIAL INFARCTION [None]
  - ARTERIOSPASM CORONARY [None]
  - ATRIOVENTRICULAR BLOCK COMPLETE [None]
  - BLOOD PRESSURE DECREASED [None]
  - BLOOD PRESSURE INCREASED [None]
  - CARDIAC ARREST [None]
  - PULSE PRESSURE DECREASED [None]
  - RESTLESSNESS [None]
  - TACHYCARDIA [None]
  - THERAPY NON-RESPONDER [None]
